FAERS Safety Report 9162635 (Version 1)
Quarter: 2013Q1

REPORT INFORMATION
  Report Type: Spontaneous
  Country: US (occurrence: US)
  Receive Date: 20130314
  Receipt Date: 20130314
  Transmission Date: 20140127
  Serious: No
  Sender: FDA-Public Use
  Company Number: US-009507513-1303USA006753

PATIENT
  Age: 4 Year
  Sex: Female
  Weight: 22.68 kg

DRUGS (3)
  1. CLARITIN CHEWABLE TABLETS [Suspect]
     Indication: SNEEZING
     Dosage: 5 MG, ONCE
     Route: 048
     Dates: start: 20130303
  2. CLARITIN CHEWABLE TABLETS [Suspect]
     Indication: LACRIMATION INCREASED
     Dosage: 10 MG, ONCE
     Route: 048
     Dates: start: 20130303
  3. CLARITIN CHEWABLE TABLETS [Suspect]
     Indication: RHINORRHOEA

REACTIONS (3)
  - Accidental exposure to product by child [Unknown]
  - Overdose [Unknown]
  - No adverse event [Unknown]
